FAERS Safety Report 7520878-2 (Version None)
Quarter: 2011Q2

REPORT INFORMATION
  Report Type: 
  Country: None (occurrence: None)
  Receive Date: 20110603
  Receipt Date: 20101118
  Transmission Date: 20111010
  Serious: Yes (Death)
  Sender: FDA-Public Use
  Company Number: JP-BAYER-201012688BYL

PATIENT
  Age: 57 Year
  Sex: Male

DRUGS (20)
  1. VOLTAREN [Concomitant]
     Dosage: 25 MG (DAILY DOSE), , RECTAL
     Route: 054
  2. HERBESSER R [Concomitant]
     Dosage: AFTER BREAKFAST
     Route: 048
  3. CARVEDILOL [Concomitant]
     Dosage: 5 MG (DAILY DOSE), , ORAL
     Route: 048
  4. CINACALCET HYDROCHLORIDE [Concomitant]
     Dosage: AFTER DINNER
     Route: 048
  5. EPOGIN [Concomitant]
     Dosage: 0.5 ML (DAILY DOSE), , UNKNOWN
     Route: 065
  6. OXAROL [Concomitant]
     Route: 042
  7. METILON [Concomitant]
     Route: 058
  8. FRANDOL [Concomitant]
     Route: 062
  9. ASPIRIN [Concomitant]
     Dosage: 100 MG (DAILY DOSE), , ORAL
     Route: 048
  10. FOSRENOL [Concomitant]
     Dosage: IMMEDIATELY AFTER EACH MEALS
     Route: 048
  11. AMOBAN [Concomitant]
     Route: 048
  12. ISOSORBIDE DINITRATE [Concomitant]
     Dosage: AFTER BREAKFAST AND DINNER
     Route: 048
  13. NEXAVAR [Suspect]
     Indication: RENAL CELL CARCINOMA
     Dosage: 400 MG (DAILY DOSE), , ORAL
     Route: 048
     Dates: start: 20100529, end: 20100529
  14. GASTROM [Concomitant]
     Dosage: 3 G (DAILY DOSE), , ORAL
     Route: 048
  15. PLETAL [Concomitant]
     Dosage: 100 MG (DAILY DOSE), , ORAL
     Route: 048
  16. MARZULENE S [Concomitant]
     Dosage: AFTER EACH MEAL
     Route: 048
  17. EPADEL [Concomitant]
     Dosage: AFTER BREAKFAST AND DINNER
     Route: 048
  18. LANSOPRAZOLE [Concomitant]
     Dosage: 15 MG (DAILY DOSE), , ORAL
     Route: 048
  19. SIGMART [Concomitant]
     Dosage: AFTER EACH MEAL
     Route: 048
  20. WARFARIN SODIUM [Concomitant]
     Dosage: AFTER DINNER
     Route: 048

REACTIONS (1)
  - PULMONARY EMBOLISM [None]
